FAERS Safety Report 21118722 (Version 3)
Quarter: 2022Q3

REPORT INFORMATION
  Report Type: Report from Study
  Country: TR (occurrence: None)
  Receive Date: 20220722
  Receipt Date: 20220809
  Transmission Date: 20221027
  Serious: Yes (Death)
  Sender: FDA-Public Use
  Company Number: TR-ROCHE-3143570

PATIENT
  Age: 67 Year
  Sex: Male
  Weight: 76 kg

DRUGS (4)
  1. TIRAGOLUMAB [Suspect]
     Active Substance: TIRAGOLUMAB
     Indication: Lung adenocarcinoma
     Dosage: MOST RECENT DOSE OF STUDY DRUG PRIOR TO AE/SAE 16/JUN/2022
     Route: 042
     Dates: start: 20210401
  2. ATEZOLIZUMAB [Suspect]
     Active Substance: ATEZOLIZUMAB
     Indication: Lung adenocarcinoma
     Dosage: MOST RECENT DOSE OF STUDY DRUG PRIOR TO AE/SAE 16/JUN/2022
     Route: 041
     Dates: start: 20210401
  3. METHYLPREDNISOLONE [Concomitant]
     Active Substance: METHYLPREDNISOLONE
     Route: 042
     Dates: start: 20220620
  4. DULOXETINE [Concomitant]
     Active Substance: DULOXETINE
     Route: 048
     Dates: start: 20220705

REACTIONS (1)
  - Hypotension [Fatal]

NARRATIVE: CASE EVENT DATE: 20220714
